FAERS Safety Report 22305665 (Version 1)
Quarter: 2023Q2

REPORT INFORMATION
  Report Type: Report from Study
  Country: IT (occurrence: IT)
  Receive Date: 20230510
  Receipt Date: 20230510
  Transmission Date: 20230722
  Serious: Yes (Hospitalization, Other)
  Sender: FDA-Public Use
  Company Number: None

PATIENT
  Age: 78 Year
  Sex: Male

DRUGS (5)
  1. RIVAROXABAN [Suspect]
     Active Substance: RIVAROXABAN
     Indication: Thrombosis prophylaxis
     Dosage: DOSAGE: 1 UNIT OF MEASURE: DOSAGE UNIT FREQUENCY OF ADMINISTRATION:DAILY
     Route: 048
     Dates: start: 20200101, end: 20220818
  2. CORDARONE [Concomitant]
     Active Substance: AMIODARONE HYDROCHLORIDE
     Indication: Tachycardia
     Dosage: DOSAGGIO: 1UNITA DI MISURA: UNITA POSOLOGICAVIA SOMMINISTRAZIONE: ORALE
  3. CANRENONE [Concomitant]
     Active Substance: CANRENONE
     Indication: Hyperaldosteronism
     Dosage: DOSAGE: 1 UNIT OF MEASURE: DOSAG E UNIT ROUTE OF ADMINISTRATION: ORAL
     Route: 048
  4. NORVASC [Concomitant]
     Active Substance: AMLODIPINE BESYLATE
     Indication: Hypertension
     Dosage: DOSAGE: 1/2 UNIT OF MEASURE: DOSAGE UNIT ROUTE OF ADMINISTRATION: ORAL
     Route: 048
  5. IRBESARTAN [Concomitant]
     Active Substance: IRBESARTAN
     Indication: Hypertension
     Dosage: DOSAGE: 1 UNIT OF MEASURE: DOSAGE UNIT ROUTE OF  ADMINISTRATION: ORAL
     Route: 048

REACTIONS (3)
  - Anaemia [Recovered/Resolved]
  - Vomiting [Recovering/Resolving]
  - Melaena [Recovered/Resolved]

NARRATIVE: CASE EVENT DATE: 20220813
